FAERS Safety Report 4607068-8 (Version None)
Quarter: 2005Q1

REPORT INFORMATION
  Report Type: 
  Country: None (occurrence: None)
  Receive Date: 20050314
  Receipt Date: 20050301
  Transmission Date: 20050727
  Serious: Yes (Death, Other)
  Sender: FDA-Public Use
  Company Number: US-BRISTOL-MYERS SQUIBB COMPANY-12882791

PATIENT
  Age: 8 Decade
  Sex: Female

DRUGS (1)
  1. ABILIFY [Suspect]

REACTIONS (4)
  - DEATH [None]
  - DEPRESSION [None]
  - MANIA [None]
  - NEUROLEPTIC MALIGNANT SYNDROME [None]
